FAERS Safety Report 25660348 (Version 1)
Quarter: 2025Q3

REPORT INFORMATION
  Report Type: Report from Study
  Country: US (occurrence: US)
  Receive Date: 20250808
  Receipt Date: 20250808
  Transmission Date: 20251020
  Serious: Yes (Hospitalization)
  Sender: EISAI
  Company Number: US-Eisai-EC-2025-187753

PATIENT
  Age: 63 Year
  Sex: Male

DRUGS (4)
  1. LENVIMA [Suspect]
     Active Substance: LENVATINIB
     Indication: Hepatic cancer
     Dates: start: 20250329, end: 20250407
  2. LENVIMA [Suspect]
     Active Substance: LENVATINIB
     Dates: start: 202505
  3. MYCOPHENOLIC ACID [Concomitant]
     Active Substance: MYCOPHENOLIC ACID
  4. LANREOTIDE [Concomitant]
     Active Substance: LANREOTIDE

REACTIONS (5)
  - Hypertension [Recovered/Resolved]
  - Renal disorder [Unknown]
  - Pneumatosis [Recovered/Resolved]
  - Transient ischaemic attack [Unknown]
  - Brain fog [Recovered/Resolved]

NARRATIVE: CASE EVENT DATE: 20250101
